FAERS Safety Report 8649653 (Version 4)
Quarter: 2014Q1

REPORT INFORMATION
  Report Type: Report from Study
  Country: GB (occurrence: GB)
  Receive Date: 20120705
  Receipt Date: 20140221
  Transmission Date: 20141002
  Serious: Yes (Death, Hospitalization)
  Sender: FDA-Public Use
  Company Number: GB-CELGENEUS-167-20785-12063174

PATIENT
  Age: 87 Year
  Sex: Male

DRUGS (3)
  1. THALIDOMIDE [Suspect]
     Indication: PLASMA CELL MYELOMA
     Dosage: 50 MILLIGRAM
     Route: 048
     Dates: start: 20120523, end: 20120621
  2. DEXAMETHASONE [Suspect]
     Indication: PLASMA CELL MYELOMA
     Dosage: 20 MILLIGRAM
     Route: 048
     Dates: start: 20120523, end: 20120611
  3. CYCLOPHOSPHAMID [Suspect]
     Indication: PLASMA CELL MYELOMA
     Dosage: 500 MILLIGRAM
     Route: 048
     Dates: start: 20120523, end: 20120617

REACTIONS (3)
  - Mobility decreased [Not Recovered/Not Resolved]
  - Decreased appetite [Not Recovered/Not Resolved]
  - Pneumonia staphylococcal [Fatal]
